FAERS Safety Report 9702205 (Version 1)
Quarter: 2013Q4

REPORT INFORMATION
  Report Type: Spontaneous
  Country: US (occurrence: None)
  Receive Date: 20131119
  Receipt Date: 20131119
  Transmission Date: 20140711
  Serious: Yes (Hospitalization)
  Sender: FDA-Public Use
  Company Number: 2016304

PATIENT
  Age: 67 Year
  Sex: Female

DRUGS (2)
  1. CLINDAMYCIN [Suspect]
     Indication: CELLULITIS
     Route: 042
  2. VANCOMYCIN HYDROCHLORIDE [Suspect]
     Indication: CELLULITIS
     Route: 042

REACTIONS (5)
  - Hypotension [None]
  - Renal failure acute [None]
  - Lactic acidosis [None]
  - Acute generalised exanthematous pustulosis [None]
  - Multi-organ failure [None]
